FAERS Safety Report 22023010 (Version 1)
Quarter: 2023Q1

REPORT INFORMATION
  Report Type: Spontaneous
  Country: CA (occurrence: CA)
  Receive Date: 20230222
  Receipt Date: 20230222
  Transmission Date: 20230418
  Serious: Yes (Other)
  Sender: FDA-Public Use
  Company Number: CA-002147023-NVSC2023CA036538

PATIENT
  Sex: Male

DRUGS (6)
  1. LABETALOL [Suspect]
     Active Substance: LABETALOL\LABETALOL HYDROCHLORIDE
     Indication: Foetal exposure during pregnancy
     Dosage: MATERNAL EXPOSURE DURING PREGNANCY: 100 MG, BID
     Route: 064
  2. LABETALOL [Suspect]
     Active Substance: LABETALOL\LABETALOL HYDROCHLORIDE
     Dosage: MATERNAL EXPOSURE DURING PREGNANCY: 200 MG, QID
     Route: 064
  3. POTASSIUM CHLORIDE [Suspect]
     Active Substance: POTASSIUM CHLORIDE
     Indication: Foetal exposure during pregnancy
     Dosage: MATERNAL EXPOSURE DURING PREGNANCY: UNK
     Route: 064
  4. NIFEDIPINE [Suspect]
     Active Substance: NIFEDIPINE
     Indication: Foetal exposure during pregnancy
     Dosage: MATERNAL EXPOSURE DURING PREGNANCY: 30 MG, Q12H
     Route: 064
  5. NIFEDIPINE [Suspect]
     Active Substance: NIFEDIPINE
     Dosage: MATERNAL EXPOSURE DURING PREGNANCY: 60MG, BID
     Route: 064
  6. EPLERENONE [Suspect]
     Active Substance: EPLERENONE
     Indication: Foetal exposure during pregnancy
     Dosage: MATERNAL EXPOSURE DURING PREGNANCY: 25 MG, BID
     Route: 064

REACTIONS (2)
  - Premature baby [Unknown]
  - Foetal exposure during pregnancy [Unknown]
